FAERS Safety Report 24215060 (Version 1)
Quarter: 2024Q3

REPORT INFORMATION
  Report Type: Report from Study
  Country: ZA (occurrence: ZA)
  Receive Date: 20240816
  Receipt Date: 20240816
  Transmission Date: 20241016
  Serious: Yes (Hospitalization)
  Sender: ABBVIE
  Company Number: ZA-ABBOTT-2024A-1386076

PATIENT
  Age: 61 Year
  Sex: Female

DRUGS (20)
  1. FENOFIBRATE [Suspect]
     Active Substance: FENOFIBRATE
     Indication: Blood cholesterol abnormal
     Dosage: 200 MG ONE CAPSULE DAILY
     Route: 048
  2. GLYCOPYRRONIUM\INDACATEROL [Concomitant]
     Active Substance: GLYCOPYRRONIUM\INDACATEROL
     Indication: Dementia Alzheimer^s type
     Dosage: 50/110 MCG USE ONE PUFF ONCE A DAY
     Route: 055
  3. Zoxil [Concomitant]
     Indication: Product used for unknown indication
     Dosage: 500 MG ONE CAPSULE TWICE A DAY
     Route: 048
  4. CARVEDILOL [Concomitant]
     Active Substance: CARVEDILOL
     Indication: Hypertension
     Dosage: 6.25 MG ONE TABLET TWICE A DAY
     Route: 048
  5. Medazine [Concomitant]
     Indication: Product used for unknown indication
     Dosage: 50 MG AS PER PACKAGE INSERT
     Route: 048
  6. MUPIROCIN [Concomitant]
     Active Substance: MUPIROCIN
     Indication: Product used for unknown indication
     Dosage: 20 MG APPLY THREE TIMES A DAY
     Route: 061
  7. PREDNISONE [Concomitant]
     Active Substance: PREDNISONE
     Indication: Product used for unknown indication
     Dosage: 5 MG SIX TABLETS DAILY
     Route: 048
  8. ANDOLEX C [Concomitant]
     Indication: Product used for unknown indication
     Dosage: AS DIRECTED
  9. Lipogen [Concomitant]
     Indication: Blood cholesterol abnormal
     Dosage: 20 MG ONE TABLET DAILY
     Route: 048
  10. AMOXICILLIN\CLAVULANIC ACID [Concomitant]
     Active Substance: AMOXICILLIN\CLAVULANIC ACID
     Indication: Product used for unknown indication
     Dosage: 1000 MG ONE TABLET TWICE A DAY
     Route: 048
  11. BUPROPION HYDROCHLORIDE [Concomitant]
     Active Substance: BUPROPION HYDROCHLORIDE
     Indication: Mental disorder
     Dosage: 150 MG ONE TABLET DAILY
     Route: 048
  12. METFORMIN HYDROCHLORIDE [Concomitant]
     Active Substance: METFORMIN HYDROCHLORIDE
     Indication: Diabetes mellitus
     Dosage: 500 MG ONE TABLET THREE TIMES A DAY
     Route: 048
  13. Allergex [Concomitant]
     Indication: Product used for unknown indication
     Dosage: AS PER PACKAGE INSERT
     Route: 048
  14. Tramazac [Concomitant]
     Indication: Pain
     Dosage: 50 MG ONE CAPSULE TWICE A DAY
     Route: 048
  15. BUTYLSCOPOLAMINE BROMIDE [Concomitant]
     Active Substance: BUTYLSCOPOLAMINE BROMIDE
     Indication: Product used for unknown indication
     Dosage: 10 MG AS PER PACKAGE INSERT
     Route: 048
  16. PULMICORT TURBUHALER [Concomitant]
     Active Substance: BUDESONIDE
     Indication: Rhinitis allergic
     Dosage: 0.5 MG USE ONE NEBUELE THREE TIMES A DAY
     Route: 055
  17. QUETIAPINE [Concomitant]
     Active Substance: QUETIAPINE
     Indication: Mental disorder
     Dosage: 25 MG ONE TABLET DAILY
     Route: 048
  18. GLICLAZIDE [Concomitant]
     Active Substance: GLICLAZIDE
     Indication: Diabetes mellitus
     Dosage: 30 MG ONE TABLET DAILY?MR
     Route: 048
  19. AZATHIOPRINE PCH [Concomitant]
     Indication: Crohn^s disease
     Dosage: 50 MG THREE TABLETS DAILY
     Route: 048
  20. BUDESONIDE [Concomitant]
     Active Substance: BUDESONIDE
     Indication: Rhinitis allergic
     Dosage: 0.5 MG USE ONE NEBUELE THREE TIMES A DAY
     Route: 055

REACTIONS (1)
  - Crohn^s disease [Unknown]
